FAERS Safety Report 9161066 (Version 2)
Quarter: 2013Q2

REPORT INFORMATION
  Report Type: Spontaneous
  Country: CA (occurrence: CA)
  Receive Date: 20130313
  Receipt Date: 20130620
  Transmission Date: 20140414
  Serious: Yes (Hospitalization)
  Sender: FDA-Public Use
  Company Number: CA-AMGEN-CANSP2013015795

PATIENT
  Age: 78 Year
  Sex: Female

DRUGS (2)
  1. ENBREL [Suspect]
     Indication: RHEUMATOID ARTHRITIS
     Dosage: 50 MG/ML, QWK
     Route: 065
     Dates: start: 20130109, end: 2013
  2. METHOTREXATE [Concomitant]
     Dosage: UNK

REACTIONS (2)
  - Impaired healing [Recovering/Resolving]
  - Staphylococcal abscess [Not Recovered/Not Resolved]
